FAERS Safety Report 21150947 (Version 1)
Quarter: 2022Q3

REPORT INFORMATION
  Report Type: Report from Study
  Country: UY (occurrence: UY)
  Receive Date: 20220729
  Receipt Date: 20220729
  Transmission Date: 20221026
  Serious: Yes (Other)
  Sender: FDA-Public Use
  Company Number: UY-ABBVIE-20K-168-3539256-00

PATIENT
  Sex: Female

DRUGS (1)
  1. HUMIRA [Suspect]
     Active Substance: ADALIMUMAB
     Indication: Rheumatoid arthritis
     Route: 058
     Dates: start: 20180925

REACTIONS (9)
  - Hip arthroplasty [Unknown]
  - Osteoarthritis [Unknown]
  - Blood glucose increased [Unknown]
  - Bone pain [Unknown]
  - Bone pain [Not Recovered/Not Resolved]
  - Hypertension [Unknown]
  - Procedural pain [Recovered/Resolved]
  - Pain in extremity [Not Recovered/Not Resolved]
  - Grip strength decreased [Unknown]

NARRATIVE: CASE EVENT DATE: 20220101
